FAERS Safety Report 7553839-8 (Version None)
Quarter: 2011Q2

REPORT INFORMATION
  Report Type: 
  Country: None (occurrence: None)
  Receive Date: 20110617
  Receipt Date: 20110614
  Transmission Date: 20111010
  Serious: Yes (Hospitalization)
  Sender: FDA-Public Use
  Company Number: DE-SANOFI-AVENTIS-F01200801253

PATIENT
  Age: 79 Year
  Sex: Male

DRUGS (9)
  1. AMLODIPINE [Concomitant]
     Indication: HYPERTENSION
     Route: 048
     Dates: start: 20080701
  2. CARDULAR PP [Concomitant]
     Route: 065
     Dates: start: 20010501
  3. OPIPRAMOL [Concomitant]
     Route: 065
     Dates: start: 20030801
  4. MOBLOC [Concomitant]
     Route: 065
     Dates: start: 20030823
  5. BISOPROLOL FUMARATE [Concomitant]
     Indication: HYPERTENSION
     Route: 048
     Dates: start: 20080701
  6. LEUPROLIDE ACETATE [Suspect]
     Indication: PROSTATE CANCER
     Route: 058
     Dates: start: 20061207, end: 20070307
  7. CASODEX [Suspect]
     Indication: PROSTATE CANCER
     Route: 048
     Dates: start: 20061207, end: 20070106
  8. CANDESARTAN CILEXETIL [Concomitant]
     Route: 065
     Dates: start: 20030801
  9. BENAZEPRIL HCL AND HYDROCHLOROTHIAZIDE [Concomitant]
     Dosage: 20/75 MG
     Route: 065
     Dates: start: 20041001

REACTIONS (1)
  - METASTASES TO LIVER [None]
